FAERS Safety Report 8609983-7 (Version None)
Quarter: 2012Q3

REPORT INFORMATION
  Report Type: 
  Country: None (occurrence: None)
  Receive Date: 20120822
  Receipt Date: 20120817
  Transmission Date: 20120928
  Serious: Yes (Other)
  Sender: FDA-Public Use
  Company Number: US-AMGEN-USASP2012052262

PATIENT
  Age: 37 Year
  Sex: Male

DRUGS (1)
  1. ENBREL [Suspect]
     Indication: PSORIASIS
     Dosage: 50 MG, 2 TIMES/WK
     Dates: start: 20120601

REACTIONS (7)
  - EPISTAXIS [None]
  - RETCHING [None]
  - HAEMOPTYSIS [None]
  - DRUG INEFFECTIVE [None]
  - CONVULSION [None]
  - COUGH [None]
  - BLOOD PRESSURE INCREASED [None]
